FAERS Safety Report 6373774-0 (Version None)
Quarter: 2009Q3

REPORT INFORMATION
  Report Type: 
  Country: None (occurrence: None)
  Receive Date: 20090924
  Receipt Date: 20090708
  Transmission Date: 20100115
  Serious: No
  Sender: FDA-Public Use
  Company Number: US-ASTRAZENECA-2009UW13478

PATIENT
  Age: 38 Year
  Sex: Female
  Weight: 99.8 kg

DRUGS (12)
  1. SEROQUEL [Suspect]
     Indication: BIPOLAR DISORDER
     Route: 048
     Dates: start: 19970101, end: 20050101
  2. SEROQUEL [Suspect]
     Indication: SCHIZOPHRENIA
     Route: 048
     Dates: start: 19970101, end: 20050101
  3. SEROQUEL [Suspect]
     Indication: DEPRESSION
     Route: 048
     Dates: start: 19970101, end: 20050101
  4. RISPERDAL [Concomitant]
     Dates: start: 20000101
  5. ZYPREXA [Concomitant]
     Dates: start: 20070101, end: 20080101
  6. WELLBUTRIN [Concomitant]
  7. ATIVAN [Concomitant]
  8. PROZAC [Concomitant]
  9. AMBIEN [Concomitant]
  10. ABILIFY [Concomitant]
     Dates: start: 20070101
  11. CLOZARIL [Concomitant]
  12. GEODON [Concomitant]

REACTIONS (6)
  - BLOOD CHOLESTEROL INCREASED [None]
  - CYSTITIS [None]
  - JOINT SPRAIN [None]
  - MIGRAINE [None]
  - OBESITY [None]
  - TYPE 1 DIABETES MELLITUS [None]
